FAERS Safety Report 13040052 (Version 3)
Quarter: 2017Q1

REPORT INFORMATION
  Report Type: Spontaneous
  Country: BE (occurrence: BE)
  Receive Date: 20161219
  Receipt Date: 20170201
  Transmission Date: 20170428
  Serious: Yes (Death)
  Sender: FDA-Public Use
  Company Number: BE-CELGENEUS-BEL-2016121130

PATIENT
  Age: 76 Year
  Sex: Male
  Weight: 69 kg

DRUGS (9)
  1. TRITACE [Concomitant]
     Active Substance: RAMIPRIL
     Indication: CARDIAC DISORDER
     Dosage: 5 MG
     Route: 065
     Dates: start: 201602
  2. EZETROL [Concomitant]
     Active Substance: EZETIMIBE
     Indication: HYPERCHOLESTEROLAEMIA
     Dosage: 10 MG
     Route: 065
     Dates: start: 201602
  3. PANTOMED [Concomitant]
     Active Substance: DEXPANTHENOL
     Indication: GASTROOESOPHAGEAL REFLUX DISEASE
     Dosage: 40G
     Route: 065
     Dates: start: 201602
  4. ABRAXANE [Suspect]
     Active Substance: PACLITAXEL
     Indication: ADENOCARCINOMA PANCREAS
     Dosage: 178 MG
     Route: 041
     Dates: start: 20161130, end: 20161130
  5. CARDIOASPIRIN [Concomitant]
     Active Substance: ASPIRIN
     Indication: CARDIAC DISORDER
     Dosage: 100 MG
     Route: 065
     Dates: start: 20161202
  6. PLAVIX [Concomitant]
     Active Substance: CLOPIDOGREL BISULFATE
     Indication: CARDIAC DISORDER
     Dosage: 75G
     Route: 065
     Dates: start: 201602
  7. GEMCITABINE [Suspect]
     Active Substance: GEMCITABINE\GEMCITABINE HYDROCHLORIDE
     Indication: ADENOCARCINOMA PANCREAS
     Dosage: 1527 MG
     Route: 065
     Dates: start: 20161130, end: 20161130
  8. EMCONCOR [Concomitant]
     Active Substance: BISOPROLOL FUMARATE
     Indication: CARDIAC DISORDER
     Dosage: 5 MG
     Route: 065
     Dates: start: 20161202
  9. ZOCOR [Concomitant]
     Active Substance: SIMVASTATIN
     Indication: HYPERCHOLESTEROLAEMIA
     Dosage: 40G
     Route: 065
     Dates: start: 201602

REACTIONS (1)
  - Myocardial ischaemia [Fatal]
